FAERS Safety Report 8820671 (Version 1)
Quarter: 2012Q4

REPORT INFORMATION
  Report Type: 
  Country: FR (occurrence: FR)
  Receive Date: 20121002
  Receipt Date: 20121002
  Transmission Date: 20130627
  Serious: Yes (Other)
  Sender: FDA-Public Use
  Company Number: FR-JNJFOC-20120911868

PATIENT
  Sex: Female

DRUGS (4)
  1. INTELENCE [Suspect]
     Indication: HIV INFECTION
     Route: 048
     Dates: start: 20120620, end: 201207
  2. TRUVADA [Concomitant]
     Indication: HIV INFECTION
     Route: 065
     Dates: end: 2012
  3. ISENTRESS [Concomitant]
     Indication: HIV INFECTION
     Route: 065
     Dates: end: 2012
  4. REYATAZ [Concomitant]
     Indication: HIV INFECTION
     Route: 065
     Dates: start: 20120620, end: 2012

REACTIONS (3)
  - Rash generalised [Recovered/Resolved]
  - Conjunctivitis [Recovered/Resolved]
  - Pruritus [Recovered/Resolved]
